FAERS Safety Report 6917499-9 (Version None)
Quarter: 2010Q3

REPORT INFORMATION
  Report Type: 
  Country: None (occurrence: None)
  Receive Date: 20100806
  Receipt Date: 20100730
  Transmission Date: 20110219
  Serious: Yes (Other)
  Sender: FDA-Public Use
  Company Number: 2007-03818

PATIENT
  Age: 69 Year
  Sex: Female
  Weight: 97 kg

DRUGS (4)
  1. VELCADE [Suspect]
     Indication: MULTIPLE MYELOMA
     Dosage: 2.75 MG, INTRAVENOUS, 2 MG, INTRAVENOUS
     Route: 042
     Dates: start: 20071023, end: 20071030
  2. VELCADE [Suspect]
     Indication: MULTIPLE MYELOMA
     Dosage: 2.75 MG, INTRAVENOUS, 2 MG, INTRAVENOUS
     Route: 042
     Dates: start: 20071102, end: 20080124
  3. MICARDIS [Concomitant]
  4. METOCLOPRAMIDE [Concomitant]

REACTIONS (5)
  - BLOOD LACTATE DEHYDROGENASE INCREASED [None]
  - CHEST PAIN [None]
  - CHILLS [None]
  - DYSPNOEA [None]
  - PYREXIA [None]
